FAERS Safety Report 15866869 (Version 4)
Quarter: 2019Q2

REPORT INFORMATION
  Report Type: Spontaneous
  Country: US (occurrence: US)
  Receive Date: 20190125
  Receipt Date: 20190621
  Transmission Date: 20190711
  Serious: Yes (Death, Other)
  Sender: FDA-Public Use
  Company Number: US-ASTRAZENECA-2019SE13886

PATIENT
  Age: 29245 Day
  Sex: Female
  Weight: 84.8 kg

DRUGS (17)
  1. TAGAMET [Suspect]
     Active Substance: CIMETIDINE
     Route: 065
  2. LEVOTHYROXINE. [Concomitant]
     Active Substance: LEVOTHYROXINE
  3. OMEPRAZOLE. [Suspect]
     Active Substance: OMEPRAZOLE
     Route: 065
     Dates: start: 2008, end: 2014
  4. LANSOPRAZOLE. [Suspect]
     Active Substance: LANSOPRAZOLE
     Route: 065
     Dates: start: 2008, end: 2014
  5. LIPITOR [Concomitant]
     Active Substance: ATORVASTATIN CALCIUM
  6. SULFAMETHOXAZOLE [Concomitant]
     Active Substance: SULFAMETHOXAZOLE
  7. AMOXICILLIN. [Concomitant]
     Active Substance: AMOXICILLIN
  8. AMOXICILLIN. [Concomitant]
     Active Substance: AMOXICILLIN
  9. HYZAAR [Concomitant]
     Active Substance: HYDROCHLOROTHIAZIDE\LOSARTAN POTASSIUM
  10. LISINOPRIL. [Concomitant]
     Active Substance: LISINOPRIL
  11. NEXIUM [Suspect]
     Active Substance: ESOMEPRAZOLE MAGNESIUM
     Indication: GASTROOESOPHAGEAL REFLUX DISEASE
     Route: 048
     Dates: start: 2008, end: 2014
  12. METOPROLOL. [Concomitant]
     Active Substance: METOPROLOL
  13. ANUCORT [Concomitant]
  14. ATORVASTATIN [Concomitant]
     Active Substance: ATORVASTATIN
  15. ATORVASTATIN [Concomitant]
     Active Substance: ATORVASTATIN
  16. LEVOTHYROXINE. [Concomitant]
     Active Substance: LEVOTHYROXINE
  17. METOPROLOL. [Concomitant]
     Active Substance: METOPROLOL

REACTIONS (6)
  - Chronic kidney disease [Fatal]
  - Urinary tract infection [Fatal]
  - Renal failure [Unknown]
  - End stage renal disease [Unknown]
  - Renal injury [Unknown]
  - Acute kidney injury [Unknown]

NARRATIVE: CASE EVENT DATE: 20141204
